FAERS Safety Report 17867822 (Version 1)
Quarter: 2020Q2

REPORT INFORMATION
  Report Type: Spontaneous
  Country: ES (occurrence: ES)
  Receive Date: 20200606
  Receipt Date: 20200606
  Transmission Date: 20200714
  Serious: Yes (Other)
  Sender: FDA-Public Use
  Company Number: ES-AUROBINDO-AUR-APL-2020-026680

PATIENT
  Age: 6 Year
  Sex: Male

DRUGS (1)
  1. RISPERIDONA AUROBINDO 1 MG/ML ORAL SOLUTION EFG [Suspect]
     Active Substance: RISPERIDONE
     Indication: PRODUCT USED FOR UNKNOWN INDICATION
     Dosage: 5 MILLILITER
     Route: 048
     Dates: start: 20200318, end: 20200318

REACTIONS (3)
  - Oculogyric crisis [Recovered/Resolved]
  - Torticollis [Recovered/Resolved]
  - Incorrect dose administered [Recovered/Resolved]

NARRATIVE: CASE EVENT DATE: 20200318
